FAERS Safety Report 20325396 (Version 7)
Quarter: 2023Q2

REPORT INFORMATION
  Report Type: Report from Study
  Country: US (occurrence: US)
  Receive Date: 20220112
  Receipt Date: 20230411
  Transmission Date: 20230722
  Serious: Yes (Other)
  Sender: FDA-Public Use
  Company Number: US-ABBVIE-21K-163-4197098-00

PATIENT
  Sex: Male

DRUGS (3)
  1. IMBRUVICA [Suspect]
     Active Substance: IBRUTINIB
     Indication: Waldenstrom^s macroglobulinaemia
     Route: 048
     Dates: start: 20180507
  2. IMBRUVICA [Suspect]
     Active Substance: IBRUTINIB
     Indication: Waldenstrom^s macroglobulinaemia
     Route: 048
     Dates: start: 20160222
  3. IMBRUVICA [Suspect]
     Active Substance: IBRUTINIB
     Indication: Waldenstrom^s macroglobulinaemia
     Route: 048
     Dates: start: 20160224

REACTIONS (17)
  - Skin cancer [Unknown]
  - Basal cell carcinoma [Unknown]
  - Onychoclasis [Unknown]
  - Basal cell carcinoma [Unknown]
  - Haematoma [Unknown]
  - Aphonia [Unknown]
  - Skin disorder [Unknown]
  - Contusion [Unknown]
  - Wound haemorrhage [Unknown]
  - Scar [Unknown]
  - Immunodeficiency [Unknown]
  - Asthenia [Unknown]
  - COVID-19 [Unknown]
  - Pain [Unknown]
  - Dehydration [Unknown]
  - Increased tendency to bruise [Unknown]
  - Ageusia [Unknown]
